FAERS Safety Report 21299465 (Version 1)
Quarter: 2022Q3

REPORT INFORMATION
  Report Type: Spontaneous
  Country: US (occurrence: US)
  Receive Date: 20220906
  Receipt Date: 20220906
  Transmission Date: 20221027
  Serious: Yes (Hospitalization)
  Sender: FDA-Public Use
  Company Number: US-NEUROCRINE BIOSCIENCES INC.-2022NBI05898

PATIENT

DRUGS (1)
  1. INGREZZA [Suspect]
     Active Substance: VALBENAZINE
     Indication: Product used for unknown indication
     Dosage: 40 MILLIGRAM,UNK
     Route: 065
     Dates: start: 2022, end: 2022

REACTIONS (2)
  - Rash [Recovering/Resolving]
  - Adverse reaction [Recovering/Resolving]

NARRATIVE: CASE EVENT DATE: 20220101
